FAERS Safety Report 4923296-6 (Version None)
Quarter: 2006Q1

REPORT INFORMATION
  Report Type: 
  Country: None (occurrence: None)
  Receive Date: 20060223
  Receipt Date: 20060223
  Transmission Date: 20060701
  Serious: Yes (Hospitalization)
  Sender: FDA-Public Use
  Company Number: None

PATIENT
  Sex: Male

DRUGS (14)
  1. METOCLOPRAMIDE [Suspect]
     Dosage: 10 MG TID PO
     Route: 048
     Dates: start: 20050825, end: 20051211
  2. LACTULOSE [Concomitant]
  3. TERAZOSIN [Concomitant]
  4. FUROSEMIDE [Concomitant]
  5. GLYBURIDE [Concomitant]
  6. LEVOTHYROXINE SODIUM [Concomitant]
  7. LISINOPRIL [Concomitant]
  8. METOPROLOL [Concomitant]
  9. MISOPROSTOL [Concomitant]
  10. OMEPRAZOLE [Concomitant]
  11. FERROUS SULFATE TAB [Concomitant]
  12. FOLIC ACID [Concomitant]
  13. MIRTAZAPINE [Concomitant]
  14. VENLAFAXINE HCL [Concomitant]

REACTIONS (4)
  - BRADYKINESIA [None]
  - CONFUSIONAL STATE [None]
  - LETHARGY [None]
  - MUSCLE RIGIDITY [None]
